FAERS Safety Report 19933776 (Version 2)
Quarter: 2021Q4

REPORT INFORMATION
  Report Type: Spontaneous
  Country: FR (occurrence: FR)
  Receive Date: 20211008
  Receipt Date: 20211025
  Transmission Date: 20220304
  Serious: Yes (Other)
  Sender: FDA-Public Use
  Company Number: FR-AMERICAN REGENT INC-2021002596

PATIENT
  Age: 73 Year
  Sex: Female
  Weight: 59.5 kg

DRUGS (15)
  1. VENOFER [Suspect]
     Active Substance: IRON SUCROSE
     Indication: Product used for unknown indication
     Dosage: 100 MG, 1 IN 1 WK
     Route: 042
     Dates: start: 20200306, end: 20201020
  2. VENOFER [Suspect]
     Active Substance: IRON SUCROSE
     Dosage: 100 MG, 1 IN 15 DAYS
     Route: 042
     Dates: start: 20201029, end: 20201117
  3. VENOFER [Suspect]
     Active Substance: IRON SUCROSE
     Dosage: 100 MG, 1 IN 1 WK
     Route: 042
     Dates: start: 20210708, end: 20210723
  4. VENOFER [Suspect]
     Active Substance: IRON SUCROSE
     Dosage: 200 MG, 1 IN 1 WK
     Route: 042
     Dates: start: 2021, end: 20210907
  5. VENOFER [Suspect]
     Active Substance: IRON SUCROSE
     Dosage: 100 MG, 1 IN 1 WK
     Dates: start: 20210907
  6. VELPHORO [Suspect]
     Active Substance: SUCROFERRIC OXYHYDROXIDE
     Indication: Hyperphosphataemia
     Dosage: 500 MG, 2 IN 1 D
     Route: 048
     Dates: start: 20201020, end: 20201215
  7. VELPHORO [Suspect]
     Active Substance: SUCROFERRIC OXYHYDROXIDE
     Dosage: 500 MG, 3 IN 1 D
     Route: 048
     Dates: start: 20201215, end: 20210817
  8. ARANESP [Suspect]
     Active Substance: DARBEPOETIN ALFA
     Indication: Product used for unknown indication
     Dosage: VARYING (WEEKLY)
     Route: 065
     Dates: start: 20200320, end: 20210907
  9. LOVENOX [Concomitant]
     Active Substance: ENOXAPARIN SODIUM
     Indication: Product used for unknown indication
     Dosage: 0.4 ML (4000 IU)
     Route: 065
     Dates: start: 20210921
  10. FUROSEMIDE [Concomitant]
     Active Substance: FUROSEMIDE
     Indication: Product used for unknown indication
     Dosage: IN THE MORNING: 500 MG ON DAYS WITHOUT DIALYSIS AND 1/4 (125 MG) ON DIALYSIS DAYS (500 MG MONDAY, WE
     Route: 048
     Dates: start: 20210817
  11. FOLIC ACID [Concomitant]
     Active Substance: FOLIC ACID
     Indication: Product used for unknown indication
     Dosage: 5 MG, ON SATURDAY AFTER DIALYSIS
     Route: 048
     Dates: start: 20210608
  12. CHOLECALCIFEROL [Concomitant]
     Active Substance: CHOLECALCIFEROL
     Indication: Product used for unknown indication
     Dosage: 2 ML ORAL DRINKABLE SOLUTION, 1 BOTTLE (1000000 IU, 1 IN 2 M)
     Route: 048
     Dates: start: 20201215
  13. IMODIUM [Concomitant]
     Active Substance: LOPERAMIDE HYDROCHLORIDE
     Indication: Product used for unknown indication
     Dosage: 1 CAPSULE PER DAY, IF NECESSARY (MAX 1 CAPSULE X3/DAY)
     Route: 048
     Dates: start: 20200721
  14. EMLA [Concomitant]
     Active Substance: LIDOCAINE\PRILOCAINE
     Indication: Product used for unknown indication
     Dosage: 5% CUTANEOUS SKIN PATCHES B/20: MEDICAL PATCHES CUTANEOUS ROUTE 2 PADS TUE TH SA TO BE PUT BEFORE DI
     Route: 062
     Dates: start: 20200310
  15. TAHOR [Concomitant]
     Active Substance: ATORVASTATIN CALCIUM
     Indication: Product used for unknown indication
     Dosage: 20 MG, EVENING
     Route: 048
     Dates: start: 20200306

REACTIONS (2)
  - Intestinal ulcer [Unknown]
  - Biopsy colon abnormal [Unknown]

NARRATIVE: CASE EVENT DATE: 20210621
